FAERS Safety Report 5303562-5 (Version None)
Quarter: 2007Q2

REPORT INFORMATION
  Report Type: 
  Country: None (occurrence: None)
  Receive Date: 20070420
  Receipt Date: 20070410
  Transmission Date: 20071010
  Serious: Yes (Other)
  Sender: FDA-Public Use
  Company Number: US-PFIZER INC-2007029451

PATIENT
  Sex: Female
  Weight: 59 kg

DRUGS (8)
  1. EXUBERA [Suspect]
     Indication: DIABETES MELLITUS
     Route: 055
  2. GLIPIZIDE [Concomitant]
  3. NADOLOL [Concomitant]
  4. CRESTOR [Concomitant]
  5. LOTREL [Concomitant]
  6. PLAVIX [Concomitant]
  7. FOSAMAX [Concomitant]
  8. ZETIA [Concomitant]

REACTIONS (2)
  - BLOOD GLUCOSE DECREASED [None]
  - DISORIENTATION [None]
